FAERS Safety Report 22917437 (Version 2)
Quarter: 2025Q3

REPORT INFORMATION
  Report Type: Spontaneous
  Country: US (occurrence: US)
  Receive Date: 20230907
  Receipt Date: 20250925
  Transmission Date: 20251021
  Serious: No
  Sender: MYLAN
  Company Number: US-MYLANLABS-2023M1091588

PATIENT
  Age: 56 Year
  Sex: Female
  Weight: 86.18 kg

DRUGS (60)
  1. EFFEXOR XR EXTENDED-RELEASE [Suspect]
     Active Substance: VENLAFAXINE HYDROCHLORIDE
     Indication: Depression
     Dosage: 150 MILLIGRAM, BID
     Dates: start: 2008
  2. EFFEXOR XR EXTENDED-RELEASE [Suspect]
     Active Substance: VENLAFAXINE HYDROCHLORIDE
     Indication: Emotional disorder of childhood
     Dosage: 150 MILLIGRAM, BID
     Dates: start: 2008
  3. EFFEXOR XR EXTENDED-RELEASE [Suspect]
     Active Substance: VENLAFAXINE HYDROCHLORIDE
     Indication: Cerebral disorder
     Dosage: 150 MILLIGRAM, BID
     Route: 065
     Dates: start: 2008
  4. EFFEXOR XR EXTENDED-RELEASE [Suspect]
     Active Substance: VENLAFAXINE HYDROCHLORIDE
     Dosage: 150 MILLIGRAM, BID
     Route: 065
     Dates: start: 2008
  5. EFFEXOR XR EXTENDED-RELEASE [Suspect]
     Active Substance: VENLAFAXINE HYDROCHLORIDE
     Dosage: 150 MILLIGRAM, BID (TWICE A DAY)
     Route: 065
     Dates: start: 2013
  6. EFFEXOR XR EXTENDED-RELEASE [Suspect]
     Active Substance: VENLAFAXINE HYDROCHLORIDE
     Dosage: 150 MILLIGRAM, BID (TWICE A DAY)
     Dates: start: 2013
  7. EFFEXOR XR EXTENDED-RELEASE [Suspect]
     Active Substance: VENLAFAXINE HYDROCHLORIDE
     Dosage: 150 MILLIGRAM, BID (TWICE A DAY)
     Dates: start: 2013
  8. EFFEXOR XR EXTENDED-RELEASE [Suspect]
     Active Substance: VENLAFAXINE HYDROCHLORIDE
     Dosage: 150 MILLIGRAM, BID (TWICE A DAY)
     Route: 065
     Dates: start: 2013
  9. EFFEXOR XR EXTENDED-RELEASE [Suspect]
     Active Substance: VENLAFAXINE HYDROCHLORIDE
     Dosage: 150 MILLIGRAM, BID (6:30AM IN THE MORNING AND 6:30 EVENING)
     Dates: start: 20231122, end: 20231129
  10. EFFEXOR XR EXTENDED-RELEASE [Suspect]
     Active Substance: VENLAFAXINE HYDROCHLORIDE
     Dosage: 150 MILLIGRAM, BID (6:30AM IN THE MORNING AND 6:30 EVENING)
     Dates: start: 20231122, end: 20231129
  11. EFFEXOR XR EXTENDED-RELEASE [Suspect]
     Active Substance: VENLAFAXINE HYDROCHLORIDE
     Dosage: 150 MILLIGRAM, BID (6:30AM IN THE MORNING AND 6:30 EVENING)
     Route: 065
     Dates: start: 20231122, end: 20231129
  12. EFFEXOR XR EXTENDED-RELEASE [Suspect]
     Active Substance: VENLAFAXINE HYDROCHLORIDE
     Dosage: 150 MILLIGRAM, BID (6:30AM IN THE MORNING AND 6:30 EVENING)
     Route: 065
     Dates: start: 20231122, end: 20231129
  13. EFFEXOR XR EXTENDED-RELEASE [Suspect]
     Active Substance: VENLAFAXINE HYDROCHLORIDE
     Dosage: 150 MILLIGRAM, BID
     Route: 065
  14. EFFEXOR XR EXTENDED-RELEASE [Suspect]
     Active Substance: VENLAFAXINE HYDROCHLORIDE
     Dosage: 150 MILLIGRAM, BID
  15. EFFEXOR XR EXTENDED-RELEASE [Suspect]
     Active Substance: VENLAFAXINE HYDROCHLORIDE
     Dosage: 150 MILLIGRAM, BID
  16. EFFEXOR XR EXTENDED-RELEASE [Suspect]
     Active Substance: VENLAFAXINE HYDROCHLORIDE
     Dosage: 150 MILLIGRAM, BID
     Route: 065
  17. OREGANO LEAF OIL [Concomitant]
     Active Substance: OREGANO LEAF OIL
     Indication: Cough
  18. OREGANO LEAF OIL [Concomitant]
     Active Substance: OREGANO LEAF OIL
     Route: 065
  19. OREGANO LEAF OIL [Concomitant]
     Active Substance: OREGANO LEAF OIL
     Route: 065
  20. OREGANO LEAF OIL [Concomitant]
     Active Substance: OREGANO LEAF OIL
  21. ZINC [Concomitant]
     Active Substance: ZINC
     Indication: Cough
  22. ZINC [Concomitant]
     Active Substance: ZINC
     Route: 065
  23. ZINC [Concomitant]
     Active Substance: ZINC
     Route: 065
  24. ZINC [Concomitant]
     Active Substance: ZINC
  25. BENZTROPINE [Concomitant]
     Active Substance: BENZTROPINE
  26. BENZTROPINE [Concomitant]
     Active Substance: BENZTROPINE
     Route: 065
  27. BENZTROPINE [Concomitant]
     Active Substance: BENZTROPINE
     Route: 065
  28. BENZTROPINE [Concomitant]
     Active Substance: BENZTROPINE
  29. LISINOPRIL [Concomitant]
     Active Substance: LISINOPRIL
  30. LISINOPRIL [Concomitant]
     Active Substance: LISINOPRIL
     Route: 065
  31. LISINOPRIL [Concomitant]
     Active Substance: LISINOPRIL
     Route: 065
  32. LISINOPRIL [Concomitant]
     Active Substance: LISINOPRIL
  33. LITHIUM CARBONATE [Concomitant]
     Active Substance: LITHIUM CARBONATE
  34. LITHIUM CARBONATE [Concomitant]
     Active Substance: LITHIUM CARBONATE
     Route: 065
  35. LITHIUM CARBONATE [Concomitant]
     Active Substance: LITHIUM CARBONATE
     Route: 065
  36. LITHIUM CARBONATE [Concomitant]
     Active Substance: LITHIUM CARBONATE
  37. LUNESTA [Concomitant]
     Active Substance: ESZOPICLONE
  38. LUNESTA [Concomitant]
     Active Substance: ESZOPICLONE
     Route: 065
  39. LUNESTA [Concomitant]
     Active Substance: ESZOPICLONE
     Route: 065
  40. LUNESTA [Concomitant]
     Active Substance: ESZOPICLONE
  41. METFORMIN [Concomitant]
     Active Substance: METFORMIN HYDROCHLORIDE
  42. METFORMIN [Concomitant]
     Active Substance: METFORMIN HYDROCHLORIDE
     Route: 065
  43. METFORMIN [Concomitant]
     Active Substance: METFORMIN HYDROCHLORIDE
     Route: 065
  44. METFORMIN [Concomitant]
     Active Substance: METFORMIN HYDROCHLORIDE
  45. FENOFIBRATE [Concomitant]
     Active Substance: FENOFIBRATE
  46. FENOFIBRATE [Concomitant]
     Active Substance: FENOFIBRATE
     Route: 065
  47. FENOFIBRATE [Concomitant]
     Active Substance: FENOFIBRATE
     Route: 065
  48. FENOFIBRATE [Concomitant]
     Active Substance: FENOFIBRATE
  49. SIMVASTATIN [Concomitant]
     Active Substance: SIMVASTATIN
  50. SIMVASTATIN [Concomitant]
     Active Substance: SIMVASTATIN
     Route: 065
  51. SIMVASTATIN [Concomitant]
     Active Substance: SIMVASTATIN
     Route: 065
  52. SIMVASTATIN [Concomitant]
     Active Substance: SIMVASTATIN
  53. PIOGLITAZONE [Concomitant]
     Active Substance: PIOGLITAZONE
  54. PIOGLITAZONE [Concomitant]
     Active Substance: PIOGLITAZONE
     Route: 065
  55. PIOGLITAZONE [Concomitant]
     Active Substance: PIOGLITAZONE
     Route: 065
  56. PIOGLITAZONE [Concomitant]
     Active Substance: PIOGLITAZONE
  57. GLIMEPIRIDE [Concomitant]
     Active Substance: GLIMEPIRIDE
  58. GLIMEPIRIDE [Concomitant]
     Active Substance: GLIMEPIRIDE
     Route: 065
  59. GLIMEPIRIDE [Concomitant]
     Active Substance: GLIMEPIRIDE
     Route: 065
  60. GLIMEPIRIDE [Concomitant]
     Active Substance: GLIMEPIRIDE

REACTIONS (10)
  - Faeces discoloured [Not Recovered/Not Resolved]
  - Amnesia [Recovered/Resolved]
  - Disturbance in attention [Recovered/Resolved]
  - Paranoia [Unknown]
  - Tension headache [Unknown]
  - Insomnia [Recovered/Resolved]
  - Diarrhoea [Unknown]
  - Product quality issue [Unknown]
  - Therapeutic product effect variable [Unknown]
  - Drug ineffective [Unknown]

NARRATIVE: CASE EVENT DATE: 20230825
